FAERS Safety Report 4414032-0 (Version None)
Quarter: 2004Q3

REPORT INFORMATION
  Report Type: 
  Country: None (occurrence: None)
  Receive Date: 20040803
  Receipt Date: 20040729
  Transmission Date: 20050211
  Serious: Yes (Other)
  Sender: FDA-Public Use
  Company Number: US-GLAXOSMITHKLINE-A0520465A

PATIENT

DRUGS (2)
  1. WELLBUTRIN XL [Suspect]
     Indication: DRUG USE FOR UNKNOWN INDICATION
     Route: 048
  2. ANTI-PSYCHOTIC MEDICATION [Suspect]
     Indication: PSYCHOTIC DISORDER
     Route: 065

REACTIONS (3)
  - AGGRESSION [None]
  - DRUG INTERACTION [None]
  - PSYCHOTIC DISORDER [None]
